FAERS Safety Report 23363997 (Version 2)
Quarter: 2024Q2

REPORT INFORMATION
  Report Type: Spontaneous
  Country: US (occurrence: US)
  Receive Date: 20240104
  Receipt Date: 20240612
  Transmission Date: 20240716
  Serious: Yes (Other)
  Sender: FDA-Public Use
  Company Number: US-TAKEDA-2023TUS125228

PATIENT
  Sex: Male
  Weight: 116 kg

DRUGS (1)
  1. ADDERALL XR [Suspect]
     Active Substance: AMPHETAMINE ASPARTATE\AMPHETAMINE SULFATE\DEXTROAMPHETAMINE SACCHARATE\DEXTROAMPHETAMINE SULFATE
     Indication: Attention deficit hyperactivity disorder
     Dosage: 2 DOSAGE FORM, QD
     Route: 065
     Dates: start: 2003

REACTIONS (8)
  - Suicidal ideation [Unknown]
  - Intrusive thoughts [Unknown]
  - Mental disorder [Unknown]
  - Depersonalisation/derealisation disorder [Unknown]
  - Nervousness [Unknown]
  - Decreased appetite [Unknown]
  - Insomnia [Unknown]
  - Anxiety [Unknown]
